FAERS Safety Report 18177242 (Version 1)
Quarter: 2020Q3

REPORT INFORMATION
  Report Type: Spontaneous
  Country: FR (occurrence: FR)
  Receive Date: 20200821
  Receipt Date: 20200821
  Transmission Date: 20201103
  Serious: Yes (Hospitalization, Other)
  Sender: FDA-Public Use
  Company Number: FR-AUROBINDO-AUR-APL-2020-039849

PATIENT
  Age: 76 Year
  Sex: Male
  Weight: 99 kg

DRUGS (5)
  1. ZERBAXA [Suspect]
     Active Substance: CEFTOLOZANE SULFATE\TAZOBACTAM SODIUM
     Indication: SEPTIC SHOCK
     Dosage: UNK
     Route: 041
     Dates: start: 20200720
  2. CASPOFUNGINE FRESENIUS KABI [Suspect]
     Active Substance: CASPOFUNGIN ACETATE
     Indication: SEPTIC SHOCK
     Dosage: 70 MILLIGRAM, ONCE A DAY
     Route: 041
     Dates: start: 20200720
  3. IOMERON [Suspect]
     Active Substance: IOMEPROL
     Indication: COMPUTERISED TOMOGRAM
     Dosage: UNK
     Route: 042
     Dates: start: 20200723, end: 20200723
  4. PANTOPRAZOL ARROW 40 MG  POWDER FOR SOLUTION FOR INJECTION [Suspect]
     Active Substance: PANTOPRAZOLE SODIUM
     Indication: GASTRIC HAEMORRHAGE
     Dosage: 80 MILLIGRAM, ONCE A DAY
     Route: 041
     Dates: start: 20200711, end: 20200724
  5. VANCOMYCINE MYLAN [Suspect]
     Active Substance: VANCOMYCIN
     Indication: SEPTIC SHOCK
     Dosage: 1250 MILLIGRAM 1 TOTAL (PUIS 2500 MG IVSE)
     Route: 041
     Dates: start: 20200720, end: 20200720

REACTIONS (1)
  - Drug reaction with eosinophilia and systemic symptoms [Recovering/Resolving]

NARRATIVE: CASE EVENT DATE: 20200725
